FAERS Safety Report 12333779 (Version 1)
Quarter: 2016Q2

REPORT INFORMATION
  Report Type: Spontaneous
  Country: US (occurrence: US)
  Receive Date: 20160504
  Receipt Date: 20160504
  Transmission Date: 20160815
  Serious: No
  Sender: FDA-Public Use
  Company Number: US-ROCHE-1674257

PATIENT
  Sex: Female

DRUGS (1)
  1. ESBRIET [Suspect]
     Active Substance: PIRFENIDONE
     Indication: IDIOPATHIC PULMONARY FIBROSIS
     Dosage: 3 PILLS MORNING, 2 PILLS LUNCH, 3 PILLS WITH DINNE
     Route: 065

REACTIONS (4)
  - Fatigue [Unknown]
  - Nausea [Unknown]
  - Medication error [Unknown]
  - Dyspnoea [Unknown]
